FAERS Safety Report 12448553 (Version 2)
Quarter: 2016Q2

REPORT INFORMATION
  Report Type: Spontaneous
  Country: IT (occurrence: IT)
  Receive Date: 20160608
  Receipt Date: 20160630
  Transmission Date: 20160815
  Serious: Yes (Hospitalization)
  Sender: FDA-Public Use
  Company Number: IT-JNJFOC-20160602846

PATIENT
  Age: 38 Year
  Sex: Male
  Weight: 80 kg

DRUGS (2)
  1. HALDOL [Suspect]
     Active Substance: HALOPERIDOL
     Indication: PRODUCT USED FOR UNKNOWN INDICATION
     Route: 048
     Dates: start: 20160602, end: 20160602
  2. ZYPADHERA [Concomitant]
     Active Substance: OLANZAPINE PAMOATE
     Indication: SCHIZOPHRENIFORM DISORDER
     Route: 030

REACTIONS (3)
  - Sluggishness [Unknown]
  - Self injurious behaviour [Unknown]
  - Drug abuse [Unknown]

NARRATIVE: CASE EVENT DATE: 20160602
